FAERS Safety Report 5314779-8 (Version None)
Quarter: 2007Q2

REPORT INFORMATION
  Report Type: 
  Country: None (occurrence: None)
  Receive Date: 20070502
  Receipt Date: 20070426
  Transmission Date: 20071010
  Serious: Yes (Other)
  Sender: FDA-Public Use
  Company Number: US-GLAXOSMITHKLINE-A0648879A

PATIENT
  Sex: Male

DRUGS (3)
  1. REQUIP [Suspect]
     Indication: RESTLESS LEGS SYNDROME
     Dosage: 1MG PER DAY
     Route: 048
     Dates: start: 20070301
  2. VALTREX [Suspect]
     Indication: HERPES SIMPLEX
     Dosage: 1G PER DAY
     Route: 048
  3. NEURONTIN [Suspect]
     Indication: RESTLESS LEGS SYNDROME
     Route: 048

REACTIONS (3)
  - DRUG INEFFECTIVE [None]
  - HERPES SIMPLEX [None]
  - HERPES VIRUS INFECTION [None]
